FAERS Safety Report 10574752 (Version 2)
Quarter: 2014Q4

REPORT INFORMATION
  Report Type: Spontaneous
  Country: CA (occurrence: CA)
  Receive Date: 20141110
  Receipt Date: 20141110
  Transmission Date: 20150529
  Serious: Yes (Other)
  Sender: FDA-Public Use
  Company Number: CA-BAXTER-2014BAX065017

PATIENT
  Age: 37 Year
  Sex: Female

DRUGS (2)
  1. ACID CONCENTRATE D12265 [Suspect]
     Active Substance: ACETIC ACID\CALCIUM CHLORIDE\DEXTROSE\MAGNESIUM CHLORIDE\POTASSIUM CHLORIDE\SODIUM CHLORIDE
     Indication: RENAL FAILURE
     Route: 065
     Dates: start: 20140815
  2. SODIUM CHLORIDE INJECTION, USP [Suspect]
     Active Substance: SODIUM CHLORIDE
     Indication: RENAL FAILURE
     Route: 065
     Dates: start: 20140815

REACTIONS (3)
  - Pain in extremity [Not Recovered/Not Resolved]
  - Procedural complication [Recovered/Resolved]
  - Thrombosis [Recovered/Resolved]

NARRATIVE: CASE EVENT DATE: 20140915
